FAERS Safety Report 15952692 (Version 4)
Quarter: 2019Q4

REPORT INFORMATION
  Report Type: Spontaneous
  Country: US (occurrence: US)
  Receive Date: 20190212
  Receipt Date: 20191210
  Transmission Date: 20200122
  Serious: No
  Sender: FDA-Public Use
  Company Number: US-PFIZER INC-2017402011

PATIENT
  Age: 59 Year
  Sex: Female

DRUGS (3)
  1. XELJANZ [Suspect]
     Active Substance: TOFACITINIB CITRATE
     Indication: RHEUMATOID ARTHRITIS
     Dosage: 10 MG (2 TABLETS), 2X/DAY(TWICE DAILY, 10MG BID)
     Route: 048
  2. XELJANZ [Suspect]
     Active Substance: TOFACITINIB CITRATE
     Dosage: 5 MG, UNK
  3. XELJANZ [Suspect]
     Active Substance: TOFACITINIB CITRATE
     Dosage: 25 MG, 2X/DAY (5 PILLS IN THE MORNING AND 5 PILLS AT NIGHT)
     Route: 048

REACTIONS (4)
  - Influenza [Unknown]
  - Nasopharyngitis [Unknown]
  - Drug ineffective [Unknown]
  - Prescribed overdose [Unknown]
